FAERS Safety Report 25667535 (Version 2)
Quarter: 2025Q3

REPORT INFORMATION
  Report Type: Spontaneous
  Country: EU (occurrence: EU)
  Receive Date: 20250811
  Receipt Date: 20250925
  Transmission Date: 20251021
  Serious: Yes (Other)
  Sender: APELLIS PHARMACEUTICALS
  Company Number: EU-BIOVITRUM-2025-ES-010782

PATIENT

DRUGS (1)
  1. PEGCETACOPLAN [Suspect]
     Active Substance: PEGCETACOPLAN
     Indication: Paroxysmal nocturnal haemoglobinuria
     Dosage: TWICE A WEEK
     Dates: start: 20250801

REACTIONS (2)
  - Neutropenia [Unknown]
  - Arthritis [Unknown]

NARRATIVE: CASE EVENT DATE: 20250801
